FAERS Safety Report 10089515 (Version 1)
Quarter: 2014Q2

REPORT INFORMATION
  Report Type: Spontaneous
  Country: CA (occurrence: CA)
  Receive Date: 20140421
  Receipt Date: 20140421
  Transmission Date: 20141212
  Serious: Yes (Other)
  Sender: FDA-Public Use
  Company Number: CA-MYLANLABS-2014S1008272

PATIENT
  Age: 73 Year
  Sex: Female

DRUGS (1)
  1. SODIUM TETRADECYL SULFATE [Suspect]
     Indication: SCLEROTHERAPY
     Route: 040

REACTIONS (2)
  - Air embolism [Recovered/Resolved]
  - Ischaemic stroke [Recovered/Resolved]
